FAERS Safety Report 8852663 (Version 1)
Quarter: 2012Q4

REPORT INFORMATION
  Report Type: 
  Country: GB (occurrence: GB)
  Receive Date: 20121022
  Receipt Date: 20121022
  Transmission Date: 20130627
  Serious: Yes (Other)
  Sender: FDA-Public Use
  Company Number: PHFR2004GB05662

PATIENT
  Sex: Male

DRUGS (4)
  1. CLOZARIL [Suspect]
     Route: 048
     Dates: start: 20040109
  2. CLOZARIL [Suspect]
     Dosage: 12.5 mg, QD
     Route: 048
  3. CLOZARIL [Suspect]
     Dosage: 37.5 mg, QD
     Route: 048
  4. RISPERIDONE [Concomitant]

REACTIONS (6)
  - Disorientation [Unknown]
  - Hallucination [Unknown]
  - Confusional state [Unknown]
  - Restlessness [Unknown]
  - Hypotension [Unknown]
  - Anxiety [Unknown]
